FAERS Safety Report 9174737 (Version 3)
Quarter: 2015Q2

REPORT INFORMATION
  Report Type: Spontaneous
  Country: US (occurrence: US)
  Receive Date: 20130320
  Receipt Date: 20150421
  Transmission Date: 20150821
  Serious: Yes (Hospitalization, Other)
  Sender: FDA-Public Use
  Company Number: US-PFIZER INC-2013090122

PATIENT
  Age: 19 Year
  Sex: Male

DRUGS (3)
  1. DILANTIN [Suspect]
     Active Substance: PHENYTOIN
     Indication: EPILEPSY
     Dosage: 3 CAPSULES , (0.098 G) EACH PER DAY
     Dates: start: 19400328
  2. DILANTIN [Suspect]
     Active Substance: PHENYTOIN
     Dosage: ABOUT 30 CAPSULES (2.925 G) ONCE
     Dates: start: 19400430, end: 19400430
  3. DILANTIN [Suspect]
     Active Substance: PHENYTOIN
     Dosage: 21 CAPSULES ONCE
     Dates: start: 19400430, end: 19400430

REACTIONS (23)
  - Inappropriate affect [Recovered/Resolved]
  - Laceration [Recovered/Resolved]
  - Overdose [Recovered/Resolved]
  - Thinking abnormal [Recovered/Resolved]
  - Diplopia [Recovered/Resolved]
  - Hyperreflexia [Recovered/Resolved]
  - Dizziness [Recovered/Resolved]
  - Urinary retention [Recovered/Resolved]
  - Clonus [Recovered/Resolved]
  - Vision blurred [Recovered/Resolved]
  - Toxicity to various agents [Recovered/Resolved]
  - Nausea [Recovered/Resolved]
  - Ataxia [Recovered/Resolved]
  - Vomiting [Recovered/Resolved]
  - Gait disturbance [Recovered/Resolved]
  - Headache [Recovered/Resolved]
  - Dyskinesia [Recovered/Resolved]
  - Mydriasis [Recovered/Resolved]
  - Tremor [Recovered/Resolved]
  - Hippus [Recovered/Resolved]
  - Nystagmus [Recovered/Resolved]
  - Dysarthria [Recovered/Resolved]
  - Confusional state [Recovered/Resolved]

NARRATIVE: CASE EVENT DATE: 19400430
